FAERS Safety Report 18123653 (Version 2)
Quarter: 2021Q1

REPORT INFORMATION
  Report Type: Spontaneous
  Country: US (occurrence: US)
  Receive Date: 20200807
  Receipt Date: 20210304
  Transmission Date: 20210419
  Serious: No
  Sender: FDA-Public Use
  Company Number: US-AEGERION PHARMACEUTICAL, INC-AEGR004784

PATIENT
  Age: 12 Year
  Sex: Male
  Weight: 27.21 kg

DRUGS (3)
  1. MYALEPT [Suspect]
     Active Substance: METRELEPTIN
     Dosage: 1.25 MG, QD
     Route: 048
     Dates: start: 20200602
  2. MYALEPT [Suspect]
     Active Substance: METRELEPTIN
     Indication: CONGENITAL GENERALISED LIPODYSTROPHY
     Dosage: 1.7 MG, QD
     Route: 058
     Dates: start: 20181205
  3. MYALEPT [Suspect]
     Active Substance: METRELEPTIN
     Dosage: 0.85 MG, QD
     Route: 048
     Dates: start: 20190224, end: 20200601

REACTIONS (4)
  - Intentional dose omission [Unknown]
  - Influenza [Recovered/Resolved]
  - Infectious mononucleosis [Recovered/Resolved]
  - Croup infectious [Recovered/Resolved]

NARRATIVE: CASE EVENT DATE: 20200102
